FAERS Safety Report 7314824-4 (Version None)
Quarter: 2011Q1

REPORT INFORMATION
  Report Type: 
  Country: None (occurrence: None)
  Receive Date: 20110225
  Receipt Date: 20101229
  Transmission Date: 20110831
  Serious: No
  Sender: FDA-Public Use
  Company Number: US-MYLANLABS-2010S1023715

PATIENT
  Age: 16 Year
  Sex: Male

DRUGS (2)
  1. AMNESTEEM [Suspect]
     Indication: ACNE
     Route: 048
     Dates: start: 20101110, end: 20101215
  2. ACCUTANE [Suspect]
     Indication: ACNE
     Route: 048
     Dates: start: 20101215, end: 20101216

REACTIONS (1)
  - DEPRESSION [None]
